FAERS Safety Report 19134083 (Version 1)
Quarter: 2021Q2

REPORT INFORMATION
  Report Type: Spontaneous
  Country: HR (occurrence: HR)
  Receive Date: 20210414
  Receipt Date: 20210414
  Transmission Date: 20210717
  Serious: Yes (Hospitalization)
  Sender: FDA-Public Use
  Company Number: HR-TEVA-2021-HR-1900016

PATIENT
  Age: 40 Year
  Sex: Female

DRUGS (4)
  1. PREDNISOLONE. [Suspect]
     Active Substance: PREDNISOLONE
     Indication: IMMUNOSUPPRESSANT DRUG THERAPY
     Route: 065
  2. THYMOGLOBULIN [Suspect]
     Active Substance: LAPINE T-LYMPHOCYTE IMMUNE GLOBULIN
     Indication: IMMUNOSUPPRESSANT DRUG THERAPY
     Route: 065
  3. CICLOSPORIN [Suspect]
     Active Substance: CYCLOSPORINE
     Indication: IMMUNOSUPPRESSANT DRUG THERAPY
     Route: 065
  4. MYCOPHENOLATE MOFETIL. [Suspect]
     Active Substance: MYCOPHENOLATE MOFETIL
     Indication: IMMUNOSUPPRESSANT DRUG THERAPY
     Route: 065

REACTIONS (1)
  - Chronic kidney disease [Unknown]
